FAERS Safety Report 25495210 (Version 2)
Quarter: 2025Q3

REPORT INFORMATION
  Report Type: Spontaneous
  Country: JP (occurrence: JP)
  Receive Date: 20250630
  Receipt Date: 20250721
  Transmission Date: 20251020
  Serious: Yes (Other)
  Sender: PFIZER
  Company Number: JP-PFIZER INC-PV202500076364

PATIENT
  Age: 82 Year
  Sex: Male

DRUGS (15)
  1. ELREXFIO [Suspect]
     Active Substance: ELRANATAMAB-BCMM
     Dosage: 12 MG, 1X/DAY
     Route: 058
     Dates: start: 20250407, end: 20250407
  2. ELREXFIO [Suspect]
     Active Substance: ELRANATAMAB-BCMM
     Dosage: 32 MG, 1X/DAY
     Route: 058
     Dates: start: 20250410, end: 20250410
  3. ELREXFIO [Suspect]
     Active Substance: ELRANATAMAB-BCMM
     Dosage: 76 MG, 1X/DAY
     Route: 058
     Dates: start: 20250414, end: 20250414
  4. BISOPROLOL FUMARATE DSEP [Concomitant]
     Indication: Cardiac failure
     Dosage: 2 DF, 1X/DAY AFTER BREAKFAST
  5. AMLODIPINE [Concomitant]
     Active Substance: AMLODIPINE BESYLATE
     Indication: Hypertension
     Dosage: 1 DF, 1X/DAY AFTER BREAKFAST
  6. RABEPRAZOLE SODIUM [Concomitant]
     Active Substance: RABEPRAZOLE SODIUM
     Indication: Gastrooesophageal reflux disease
     Dosage: 2 DF, 1X/DAY AFTER DINNER
  7. VILDAGLIPTIN [Concomitant]
     Active Substance: VILDAGLIPTIN
     Indication: Diabetes mellitus
     Dosage: 1 DF, 2X/DAY AFTER BREAKFAST AND DINNER
  8. VIBEGRON [Concomitant]
     Active Substance: VIBEGRON
     Indication: Benign prostatic hyperplasia
     Dosage: 1 DF, 1X/DAY AFTER DINNER
  9. NAFTOPIDIL [Concomitant]
     Active Substance: NAFTOPIDIL
     Indication: Benign prostatic hyperplasia
     Dosage: 1 DF, 1X/DAY AFTER DINNER
  10. FLUCONAZOLE [Concomitant]
     Active Substance: FLUCONAZOLE
     Indication: Systemic mycosis
     Dosage: 1 DF, 1X/DAY AFTER BREAKFAST, ^TAKATA^
  11. ELIQUIS [Concomitant]
     Active Substance: APIXABAN
     Indication: Deep vein thrombosis
     Dosage: 1 DF, 2X/DAY AFTER BREAKFAST AND DINNER
  12. MIGLITOL OD SAWAI [Concomitant]
     Indication: Diabetes mellitus
     Dosage: 1 DF, 3X/DAY IMMEDIATELY BEFORE EACH MEAL
  13. MAGNESIUM OXIDE [Concomitant]
     Active Substance: MAGNESIUM OXIDE
     Indication: Constipation
     Dosage: 2 DF, 2X/DAY AFTER BREAKFAST AND DINNER
  14. ACYCLOVIR [Concomitant]
     Active Substance: ACYCLOVIR
     Indication: Prophylaxis
     Dosage: 1 DF, 1X/DAY AFTER BREAKFAST, ^SAWAI^
  15. LEVOFLOXACIN [Concomitant]
     Active Substance: LEVOFLOXACIN
     Indication: Pneumonia
     Dosage: 2 DF, 1X/DAY AFTER DINNER

REACTIONS (2)
  - Cytomegalovirus viraemia [Recovered/Resolved]
  - Off label use [Unknown]

NARRATIVE: CASE EVENT DATE: 20250414
